FAERS Safety Report 4713293-8 (Version None)
Quarter: 2005Q3

REPORT INFORMATION
  Report Type: 
  Country: None (occurrence: None)
  Receive Date: 20050713
  Receipt Date: 20050706
  Transmission Date: 20060218
  Serious: Yes (Hospitalization)
  Sender: FDA-Public Use
  Company Number: PHBS2005TR09728

PATIENT
  Age: 68 Year
  Sex: Female

DRUGS (1)
  1. GLEEVEC [Suspect]
     Indication: CHRONIC MYELOID LEUKAEMIA
     Dosage: 400 MG/D
     Route: 048
     Dates: start: 20050507, end: 20050606

REACTIONS (7)
  - ERYTHEMA [None]
  - HYPERSENSITIVITY [None]
  - OEDEMA [None]
  - PRURITUS [None]
  - SKIN CHAPPED [None]
  - SKIN WARM [None]
  - SWELLING FACE [None]
